FAERS Safety Report 9161380 (Version 1)
Quarter: 2013Q1

REPORT INFORMATION
  Report Type: Spontaneous
  Country: US (occurrence: US)
  Receive Date: 20130313
  Receipt Date: 20130313
  Transmission Date: 20140127
  Serious: Yes (Other)
  Sender: FDA-Public Use
  Company Number: US-PFIZER INC-2013084983

PATIENT
  Sex: Male

DRUGS (1)
  1. LYRICA [Suspect]
     Dosage: UNK, 1X/DAY
     Dates: start: 201303

REACTIONS (4)
  - Hypertension [Unknown]
  - Dizziness [Unknown]
  - Somnolence [Unknown]
  - Dysphagia [Unknown]
